FAERS Safety Report 8577819-9 (Version None)
Quarter: 2012Q3

REPORT INFORMATION
  Report Type: 
  Country: None (occurrence: None)
  Receive Date: 20120808
  Receipt Date: 20120730
  Transmission Date: 20120928
  Serious: No
  Sender: FDA-Public Use
  Company Number: US-BIOGENIDEC-2012BI028136

PATIENT
  Age: 38 Year
  Sex: Female

DRUGS (3)
  1. TYSABRI [Suspect]
     Indication: MULTIPLE SCLEROSIS
     Route: 042
     Dates: start: 20080418, end: 20091009
  2. TYSABRI [Suspect]
     Route: 042
     Dates: start: 20110920
  3. TYSABRI [Suspect]
     Route: 042
     Dates: start: 20120402

REACTIONS (1)
  - URTICARIA [None]
